FAERS Safety Report 14611879 (Version 1)
Quarter: 2018Q1

REPORT INFORMATION
  Report Type: Spontaneous
  Country: JP (occurrence: JP)
  Receive Date: 20180308
  Receipt Date: 20180308
  Transmission Date: 20180509
  Serious: Yes (Life-Threatening, Hospitalization, Other)
  Sender: FDA-Public Use
  Company Number: JP-BAYER-2018-040578

PATIENT
  Age: 81 Year
  Sex: Male
  Weight: 64.4 kg

DRUGS (14)
  1. BIOFERMIN [Concomitant]
     Active Substance: BACILLUS SUBTILIS\LACTOBACILLUS ACIDOPHILUS\STREPTOCOCCUS FAECAIS
  2. URIEF [Concomitant]
     Active Substance: SILODOSIN
  3. LAGNOS [Concomitant]
  4. SYAKUYAKUKANZOTO [Concomitant]
     Active Substance: UNSPECIFIED INGREDIENT
  5. VOGLIBOSE [Concomitant]
     Active Substance: VOGLIBOSE
  6. LOSARTAN POTASSIUM W/HYDROCHLOROTHIAZIDE [Concomitant]
     Active Substance: HYDROCHLOROTHIAZIDE\LOSARTAN POTASSIUM
  7. NEXAVAR [Suspect]
     Active Substance: SORAFENIB
     Indication: HEPATOCELLULAR CARCINOMA
     Dosage: UNK
     Dates: start: 201706
  8. NEXIUM [Concomitant]
     Active Substance: ESOMEPRAZOLE MAGNESIUM
  9. STIVARGA [Suspect]
     Active Substance: REGORAFENIB
     Indication: HEPATOCELLULAR CARCINOMA
     Dosage: 160 MG, QD
     Route: 048
     Dates: start: 20180119, end: 20180129
  10. JANUVIA [Concomitant]
     Active Substance: SITAGLIPTIN PHOSPHATE
  11. BICALUTAMIDE. [Concomitant]
     Active Substance: BICALUTAMIDE
  12. FEBUXOSTAT. [Concomitant]
     Active Substance: FEBUXOSTAT
  13. VEGIN [Concomitant]
  14. LICKLE [Concomitant]
     Active Substance: ISOLEUCINE\LEUCINE\VALINE

REACTIONS (2)
  - Hepatocellular carcinoma [None]
  - Tumour rupture [Recovering/Resolving]

NARRATIVE: CASE EVENT DATE: 201712
